FAERS Safety Report 6946418-4 (Version None)
Quarter: 2010Q3

REPORT INFORMATION
  Report Type: 
  Country: None (occurrence: None)
  Receive Date: 20100824
  Receipt Date: 20100816
  Transmission Date: 20110219
  Serious: Yes (Death)
  Sender: FDA-Public Use
  Company Number: GER/USA/10/0015269

PATIENT
  Age: 49 Year
  Sex: Male

DRUGS (8)
  1. SERTRALINE HYDROCHLORIDE [Suspect]
     Indication: PRODUCT USED FOR UNKNOWN INDICATION
  2. FENTANYL-100 [Suspect]
     Indication: PRODUCT USED FOR UNKNOWN INDICATION
  3. PROPOXYPHENE HCL [Suspect]
     Indication: PRODUCT USED FOR UNKNOWN INDICATION
  4. ACETAMINOPHEN [Concomitant]
  5. HYDROCODONE BITARTRATE [Concomitant]
  6. CYCLOBENZAPRINE [Concomitant]
  7. DIAZEPAM [Concomitant]
  8. IBUPROFEN [Concomitant]

REACTIONS (5)
  - DRUG ABUSE [None]
  - INCORRECT ROUTE OF DRUG ADMINISTRATION [None]
  - OVERDOSE [None]
  - PULMONARY CONGESTION [None]
  - PULMONARY OEDEMA [None]
